FAERS Safety Report 10445026 (Version 1)
Quarter: 2014Q3

REPORT INFORMATION
  Report Type: Report from Study
  Country: CO (occurrence: CO)
  Receive Date: 20140910
  Receipt Date: 20140910
  Transmission Date: 20150326
  Serious: Yes (Death, Hospitalization)
  Sender: FDA-Public Use
  Company Number: CO-BRISTOL-MYERS SQUIBB COMPANY-21366323

PATIENT
  Sex: Female

DRUGS (1)
  1. SPRYCEL [Suspect]
     Active Substance: DASATINIB
     Indication: CHRONIC MYELOID LEUKAEMIA
     Dosage: STOP DT: 02-SEP-2014?TABS
     Dates: start: 20140515

REACTIONS (3)
  - Peripheral swelling [Unknown]
  - Respiratory arrest [Fatal]
  - Choking [Unknown]

NARRATIVE: CASE EVENT DATE: 20140902
